FAERS Safety Report 8873984 (Version 1)
Quarter: 2012Q4

REPORT INFORMATION
  Report Type: 
  Country: US (occurrence: US)
  Receive Date: 20121030
  Receipt Date: 20121030
  Transmission Date: 20130627
  Serious: Yes (Other)
  Sender: FDA-Public Use
  Company Number: US-BAXTER-2012BAX021934

PATIENT
  Age: 66 Year
  Sex: Male

DRUGS (4)
  1. CYTOXAN TABLETS (CYCLOPHOSPHAMIDE TABLETS, USP) [Suspect]
     Indication: B-CELL LYMPHOMA
     Route: 048
  2. PREDNISONE [Suspect]
     Indication: B-CELL LYMPHOMA
     Route: 048
  3. ETOPOSIDE [Suspect]
     Indication: B-CELL LYMPHOMA
     Route: 048
  4. PROCARBAZINE [Suspect]
     Indication: B-CELL LYMPHOMA
     Route: 048

REACTIONS (2)
  - Osteomyelitis fungal [Recovered/Resolved]
  - Meningitis cryptococcal [Recovered/Resolved]
